FAERS Safety Report 6488823-9 (Version None)
Quarter: 2009Q4

REPORT INFORMATION
  Report Type: 
  Country: None (occurrence: None)
  Receive Date: 20091210
  Receipt Date: 20091202
  Transmission Date: 20100525
  Serious: Yes (Other)
  Sender: FDA-Public Use
  Company Number: BR-PFIZER INC-2009304980

PATIENT
  Age: 67 Year
  Sex: Female
  Weight: 57 kg

DRUGS (3)
  1. GABAPENTIN [Suspect]
     Indication: NEURALGIA
     Dosage: 600 MG, 1X/DAY
     Route: 048
  2. GABAPENTIN [Suspect]
     Dosage: UNK
     Route: 048
     Dates: start: 20070101
  3. RIVOTRIL [Suspect]
     Dosage: UNK
     Dates: start: 20050101

REACTIONS (9)
  - HAEMATOMA [None]
  - HEADACHE [None]
  - HUNGER [None]
  - MEMORY IMPAIRMENT [None]
  - OCULAR HYPERAEMIA [None]
  - PAIN [None]
  - RETINAL VASCULAR OCCLUSION [None]
  - SWELLING [None]
  - WEIGHT INCREASED [None]
